FAERS Safety Report 13473807 (Version 1)
Quarter: 2017Q2

REPORT INFORMATION
  Report Type: Spontaneous
  Country: JP (occurrence: JP)
  Receive Date: 20170424
  Receipt Date: 20170424
  Transmission Date: 20170830
  Serious: Yes (Hospitalization, Other)
  Sender: FDA-Public Use
  Company Number: PHHY2010JP101483

PATIENT
  Age: 71 Year
  Sex: Male

DRUGS (16)
  1. NOVASTAN [Suspect]
     Active Substance: ARGATROBAN
     Dosage: 20 MG, QD
     Route: 041
     Dates: start: 20100624, end: 20100627
  2. ACETYLSALICYLIC ACID [Concomitant]
     Active Substance: ASPIRIN
     Indication: THROMBOTIC CEREBRAL INFARCTION
     Dosage: 100 MG, UNK
     Route: 048
     Dates: start: 20100701
  3. ACETYLSALICYLIC ACID [Concomitant]
     Active Substance: ASPIRIN
     Dosage: 100 MG, UNK
     Route: 048
     Dates: start: 20100823
  4. NOVASTAN [Suspect]
     Active Substance: ARGATROBAN
     Dosage: 60 MG, QD
     Route: 041
     Dates: start: 20100622, end: 20100622
  5. NOVASTAN [Suspect]
     Active Substance: ARGATROBAN
     Dosage: 30 MG, QD
     Route: 041
     Dates: start: 20100621, end: 20100621
  6. GASTER [Suspect]
     Active Substance: FAMOTIDINE
     Indication: PRODUCT USED FOR UNKNOWN INDICATION
     Dosage: UNK
     Route: 065
  7. KETAS [Suspect]
     Active Substance: IBUDILAST
     Dosage: 30 MG, QD
     Route: 048
     Dates: start: 20100626, end: 20100701
  8. LOCHOL [Suspect]
     Active Substance: FLUVASTATIN SODIUM
     Indication: HYPERLIPIDAEMIA
     Dosage: 20 MG, QD
     Route: 048
     Dates: start: 20100622, end: 20100701
  9. KETAS [Suspect]
     Active Substance: IBUDILAST
     Indication: PRODUCT USED FOR UNKNOWN INDICATION
     Dosage: UNK
     Route: 065
  10. GLYCEOL [Concomitant]
     Active Substance: GLYCERIN
     Indication: THROMBOTIC CEREBRAL INFARCTION
     Dosage: 600 ML, UNK
     Route: 041
     Dates: start: 20100621, end: 20100625
  11. NOVASTAN [Suspect]
     Active Substance: ARGATROBAN
     Indication: THROMBOTIC CEREBRAL INFARCTION
     Dosage: UNK
     Route: 041
     Dates: start: 20100621
  12. NOVASTAN [Suspect]
     Active Substance: ARGATROBAN
     Dosage: 40 MG, QD
     Route: 041
     Dates: start: 20100623, end: 20100623
  13. NOVASTAN [Suspect]
     Active Substance: ARGATROBAN
     Dosage: 10 MG, QD
     Route: 041
     Dates: start: 20100627, end: 20100628
  14. PLETAAL [Suspect]
     Active Substance: CILOSTAZOL
     Indication: THROMBOTIC CEREBRAL INFARCTION
     Dosage: UNK
     Route: 048
     Dates: start: 20100624
  15. RADICUT [Suspect]
     Active Substance: EDARAVONE
     Indication: THROMBOTIC CEREBRAL INFARCTION
     Dosage: 30 MG, 2X/DAY
     Route: 041
     Dates: start: 20100621, end: 20100703
  16. GASTER [Suspect]
     Active Substance: FAMOTIDINE
     Dosage: 40 MG, QD
     Route: 048
     Dates: start: 20100622, end: 20100702

REACTIONS (17)
  - Aspartate aminotransferase increased [Recovered/Resolved]
  - Alanine aminotransferase increased [Recovered/Resolved]
  - Glomerular filtration rate decreased [Not Recovered/Not Resolved]
  - Gamma-glutamyltransferase increased [Not Recovered/Not Resolved]
  - Arterial injury [Unknown]
  - Blood bilirubin increased [Recovered/Resolved]
  - Blood lactate dehydrogenase increased [Recovered/Resolved]
  - Oedema [Unknown]
  - Alanine aminotransferase decreased [Recovered/Resolved]
  - White blood cell count increased [Unknown]
  - Neurological symptom [Unknown]
  - Hepatic enzyme decreased [Unknown]
  - Hepatic function abnormal [Recovered/Resolved]
  - Cerebral artery perforation [Unknown]
  - White blood cell count increased [Recovered/Resolved]
  - NIH stroke scale score decreased [Not Recovered/Not Resolved]
  - Haemoglobin decreased [Recovered/Resolved]

NARRATIVE: CASE EVENT DATE: 20100628
